APPROVED DRUG PRODUCT: IBUPROFEN
Active Ingredient: IBUPROFEN
Strength: 40MG/ML
Dosage Form/Route: SUSPENSION/DROPS;ORAL
Application: A213506 | Product #001
Applicant: AUROBINDO PHARMA LTD
Approved: Apr 8, 2024 | RLD: No | RS: No | Type: OTC